FAERS Safety Report 8187710-8 (Version None)
Quarter: 2012Q1

REPORT INFORMATION
  Report Type: 
  Country: None (occurrence: None)
  Receive Date: 20120306
  Receipt Date: 20120112
  Transmission Date: 20120608
  Serious: No
  Sender: FDA-Public Use
  Company Number: US-GLAXOSMITHKLINE-A0961160A

PATIENT
  Age: 24 Year
  Sex: Female

DRUGS (2)
  1. EFFEXOR [Concomitant]
  2. LAMICTAL [Suspect]
     Indication: BIPOLAR II DISORDER
     Dosage: 75MG PER DAY
     Route: 048

REACTIONS (1)
  - ANXIETY [None]
